FAERS Safety Report 15183770 (Version 1)
Quarter: 2018Q3

REPORT INFORMATION
  Report Type: Spontaneous
  Country: GB (occurrence: GB)
  Receive Date: 20180723
  Receipt Date: 20180723
  Transmission Date: 20181010
  Serious: Yes (Other)
  Sender: FDA-Public Use
  Company Number: GB-SA-2018SA167750

PATIENT
  Age: 63 Year
  Sex: Male

DRUGS (2)
  1. AFLIBERCEPT [Suspect]
     Active Substance: AFLIBERCEPT
     Indication: RETINAL VEIN OCCLUSION
     Dosage: UNK UNK, UNK
     Route: 042
  2. AFLIBERCEPT [Suspect]
     Active Substance: AFLIBERCEPT
     Indication: CYSTOID MACULAR OEDEMA

REACTIONS (1)
  - Retinal deposits [Unknown]
